FAERS Safety Report 14635040 (Version 1)
Quarter: 2018Q1

REPORT INFORMATION
  Report Type: Spontaneous
  Country: US (occurrence: US)
  Receive Date: 20180313
  Receipt Date: 20180313
  Transmission Date: 20180509
  Serious: No
  Sender: FDA-Public Use
  Company Number: None

PATIENT
  Age: 43 Year
  Sex: Female

DRUGS (1)
  1. DOXY 150MG [Suspect]
     Active Substance: DOXYCYCLINE
     Indication: ACNE
     Dates: start: 2015

REACTIONS (3)
  - Rash [None]
  - Product substitution issue [None]
  - Pruritus [None]
